FAERS Safety Report 6228534-8 (Version None)
Quarter: 2009Q2

REPORT INFORMATION
  Report Type: 
  Country: None (occurrence: None)
  Receive Date: 20090612
  Receipt Date: 20090609
  Transmission Date: 20091009
  Serious: Yes (Death, Other)
  Sender: FDA-Public Use
  Company Number: PHHY2009GB18594

PATIENT
  Sex: Female

DRUGS (4)
  1. CLOZARIL [Suspect]
     Indication: SCHIZOPHRENIA
     Dosage: UNK
     Dates: start: 20050819
  2. CLOZARIL [Suspect]
     Dosage: 650 MG, UNK
     Dates: start: 20090501
  3. VENLAFAXINE HCL [Concomitant]
     Dosage: UNK
  4. VALPROATE SODIUM [Concomitant]
     Indication: CONVULSION

REACTIONS (2)
  - CONVULSION [None]
  - DEATH [None]
